FAERS Safety Report 11330592 (Version 2)
Quarter: 2015Q3

REPORT INFORMATION
  Report Type: Report from Study
  Country: MX (occurrence: MX)
  Receive Date: 20150803
  Receipt Date: 20150828
  Transmission Date: 20151125
  Serious: Yes (Hospitalization)
  Sender: FDA-Public Use
  Company Number: PHHY2015MX090258

PATIENT
  Sex: Female

DRUGS (1)
  1. CO-DIOVAN [Suspect]
     Active Substance: HYDROCHLOROTHIAZIDE\VALSARTAN
     Indication: HYPERTENSION
     Dosage: UNK (START: 8 YEARS AGO)
     Route: 065

REACTIONS (2)
  - Peripheral swelling [Recovered/Resolved]
  - Renal failure [Unknown]
